FAERS Safety Report 10167930 (Version 1)
Quarter: 2014Q2

REPORT INFORMATION
  Report Type: Spontaneous
  Country: US (occurrence: US)
  Receive Date: 20140512
  Receipt Date: 20140512
  Transmission Date: 20141212
  Serious: Yes (Other)
  Sender: FDA-Public Use
  Company Number: US-GLAXOSMITHKLINE-A1071928A

PATIENT
  Age: 60 Year
  Sex: Male

DRUGS (4)
  1. VENTOLIN [Suspect]
     Indication: CHRONIC OBSTRUCTIVE PULMONARY DISEASE
     Dosage: 2PUFF AS REQUIRED
     Route: 055
  2. IPRATROPIUM BROMIDE NEB [Concomitant]
  3. ALBUTEROL NEBULIZER [Concomitant]
  4. NICORETTE GUM [Concomitant]

REACTIONS (1)
  - Hepatocellular carcinoma [Unknown]
